FAERS Safety Report 6065768-X (Version None)
Quarter: 2009Q1

REPORT INFORMATION
  Report Type: 
  Country: None (occurrence: None)
  Receive Date: 20090130
  Receipt Date: 20090128
  Transmission Date: 20090719
  Serious: Yes (Death)
  Sender: FDA-Public Use
  Company Number: 2009SP002193

PATIENT
  Age: 62 Year
  Sex: Female
  Weight: 65 kg

DRUGS (7)
  1. PEG-INTRON [Suspect]
     Indication: HEPATITIS C
     Dosage: 80 MCG; QW; SC
     Route: 058
     Dates: start: 20080318, end: 20090114
  2. REBETOL [Suspect]
     Indication: HEPATITIS C
     Dosage: 800 MG; QD; PO, 600 MG; QD; PO
     Route: 048
     Dates: start: 20080318, end: 20080730
  3. REBETOL [Suspect]
     Indication: HEPATITIS C
     Dosage: 800 MG; QD; PO, 600 MG; QD; PO
     Route: 048
     Dates: start: 20080806, end: 20081007
  4. REBETOL [Suspect]
     Indication: HEPATITIS C
     Dosage: 800 MG; QD; PO, 600 MG; QD; PO
     Route: 048
     Dates: start: 20081008, end: 20090114
  5. LASIX [Concomitant]
  6. ADALAT CC [Concomitant]
  7. MICARDIS [Concomitant]

REACTIONS (4)
  - ABDOMINAL PAIN UPPER [None]
  - AORTIC DISSECTION [None]
  - BLOOD PRESSURE SYSTOLIC INCREASED [None]
  - CARDIO-RESPIRATORY ARREST [None]
